FAERS Safety Report 15701038 (Version 1)
Quarter: 2018Q4

REPORT INFORMATION
  Report Type: Spontaneous
  Country: RS (occurrence: RS)
  Receive Date: 20181207
  Receipt Date: 20181207
  Transmission Date: 20190205
  Serious: Yes (Death)
  Sender: FDA-Public Use
  Company Number: RS-B.I. PHARMACEUTICALS,INC./RIDGEFIELD-2018-BI-056520

PATIENT
  Age: 71 Year
  Sex: Female

DRUGS (1)
  1. PRAXBIND [Suspect]
     Active Substance: IDARUCIZUMAB
     Indication: PROCOAGULANT THERAPY
     Route: 065
     Dates: start: 20181119

REACTIONS (3)
  - Respiratory failure [Fatal]
  - Lung neoplasm malignant [Fatal]
  - Expired product administered [Recovering/Resolving]

NARRATIVE: CASE EVENT DATE: 20181119
